FAERS Safety Report 18498154 (Version 2)
Quarter: 2021Q1

REPORT INFORMATION
  Report Type: Spontaneous
  Country: US (occurrence: US)
  Receive Date: 20201112
  Receipt Date: 20210210
  Transmission Date: 20210419
  Serious: No
  Sender: FDA-Public Use
  Company Number: US-RIGEL PHARMACEUTICALS, INC.-2020FOS000520

PATIENT
  Age: 76 Year
  Sex: Male

DRUGS (1)
  1. TAVALISSE [Suspect]
     Active Substance: FOSTAMATINIB
     Indication: THROMBOCYTOPENIA
     Dosage: 100 MG, Q12H
     Route: 048
     Dates: start: 201909

REACTIONS (4)
  - Accidental overdose [Unknown]
  - Cough [Unknown]
  - Tooth loss [Unknown]
  - Emergency care [Unknown]

NARRATIVE: CASE EVENT DATE: 20201102
